FAERS Safety Report 17161360 (Version 2)
Quarter: 2020Q1

REPORT INFORMATION
  Report Type: Spontaneous
  Country: DE (occurrence: DE)
  Receive Date: 20191216
  Receipt Date: 20200117
  Transmission Date: 20200409
  Serious: Yes (Death, Hospitalization)
  Sender: FDA-Public Use
  Company Number: DE-B.I. PHARMACEUTICALS,INC./RIDGEFIELD-2019-BI-120072

PATIENT
  Age: 81 Year
  Sex: Female

DRUGS (3)
  1. PRADAXA [Suspect]
     Active Substance: DABIGATRAN ETEXILATE MESYLATE
     Route: 065
  2. PRADAXA [Suspect]
     Active Substance: DABIGATRAN ETEXILATE MESYLATE
     Indication: ATRIAL FIBRILLATION
     Route: 065
     Dates: start: 20110921
  3. PRADAXA [Suspect]
     Active Substance: DABIGATRAN ETEXILATE MESYLATE
     Route: 065
     Dates: start: 20120119, end: 20141001

REACTIONS (14)
  - Ulcer [Unknown]
  - Death [Fatal]
  - Proctitis [Unknown]
  - Lower gastrointestinal haemorrhage [Recovered/Resolved]
  - Fall [Unknown]
  - Circulatory collapse [Unknown]
  - Lower gastrointestinal haemorrhage [Unknown]
  - Weight decreased [Unknown]
  - Unresponsive to stimuli [Unknown]
  - Asthenia [Unknown]
  - Disturbance in attention [Unknown]
  - Off label use [Unknown]
  - Haematoma [Unknown]
  - Renal failure [Unknown]

NARRATIVE: CASE EVENT DATE: 201708
